FAERS Safety Report 4867172-6 (Version None)
Quarter: 2005Q4

REPORT INFORMATION
  Report Type: 
  Country: None (occurrence: None)
  Receive Date: 20051222
  Receipt Date: 20051213
  Transmission Date: 20060501
  Serious: Yes (Other)
  Sender: FDA-Public Use
  Company Number: 2005169140

PATIENT
  Sex: Male
  Weight: 108.8633 kg

DRUGS (5)
  1. VIAGRA [Suspect]
     Indication: ERECTILE DYSFUNCTION
     Dosage: 50 MG (50 MG, 1 AS NECESSARY), UNKNOWN
     Dates: start: 20030101
  2. INSULIN HUMULI 70/30 (INSULIN HUMAN, INSULIN HUMANA INJECTION, ISOPHAN [Concomitant]
  3. ZANTAC [Concomitant]
  4. METFORMAIN (METFORMIN) [Concomitant]
  5. POTASSIUM (POTASSIUM) [Concomitant]

REACTIONS (4)
  - BACK DISORDER [None]
  - DRUG EFFECT DECREASED [None]
  - LEG AMPUTATION [None]
  - WEIGHT INCREASED [None]
